FAERS Safety Report 6278447-0 (Version None)
Quarter: 2009Q3

REPORT INFORMATION
  Report Type: 
  Country: None (occurrence: None)
  Receive Date: 20090722
  Receipt Date: 20090713
  Transmission Date: 20100115
  Serious: Yes (Other)
  Sender: FDA-Public Use
  Company Number: PHHY2009BR29195

PATIENT
  Sex: Female

DRUGS (4)
  1. TEGRETOL [Suspect]
     Indication: EPILEPSY
     Dosage: 400MG TWICE DAILY
  2. TEGRETOL [Suspect]
     Indication: HAEMANGIOMA
     Dosage: 400 MG, ONCE DAILY IN NIGHT
     Dates: start: 20040101
  3. PURAN T4 [Concomitant]
     Dosage: UNK
     Dates: start: 20050101
  4. LEVOTHYROXINE SODIUM [Concomitant]
     Dosage: 112UG 1 TABLET DAILY DURING FASTING
     Dates: start: 20090501

REACTIONS (8)
  - HEADACHE [None]
  - HEPATIC ENZYME ABNORMAL [None]
  - HEPATIC FIBROSIS [None]
  - HEPATITIS C [None]
  - HYPOTHYROIDISM [None]
  - OCULAR ICTERUS [None]
  - WEIGHT DECREASED [None]
  - YELLOW SKIN [None]
